FAERS Safety Report 6918800-2 (Version None)
Quarter: 2010Q3

REPORT INFORMATION
  Report Type: 
  Country: None (occurrence: None)
  Receive Date: 20100811
  Receipt Date: 20100802
  Transmission Date: 20110219
  Serious: Yes (Other)
  Sender: FDA-Public Use
  Company Number: US-JNJFOC-20100800833

PATIENT
  Age: 6 Year
  Sex: Female
  Weight: 18.14 kg

DRUGS (1)
  1. CONCERTA [Suspect]
     Indication: ATTENTION DEFICIT/HYPERACTIVITY DISORDER
     Route: 048

REACTIONS (2)
  - OBSESSIVE-COMPULSIVE DISORDER [None]
  - WEIGHT DECREASED [None]
